FAERS Safety Report 21897525 (Version 1)
Quarter: 2023Q1

REPORT INFORMATION
  Report Type: Spontaneous
  Country: TH (occurrence: TH)
  Receive Date: 20230123
  Receipt Date: 20230123
  Transmission Date: 20230417
  Serious: Yes (Other)
  Sender: FDA-Public Use
  Company Number: TH-002147023-NVSC2023TH010905

PATIENT
  Age: 62 Year
  Sex: Female
  Weight: 65 kg

DRUGS (2)
  1. RIBOCICLIB [Suspect]
     Active Substance: RIBOCICLIB
     Indication: Breast cancer metastatic
     Dosage: UNK
     Route: 065
     Dates: start: 20220824
  2. RIBOCICLIB [Suspect]
     Active Substance: RIBOCICLIB
     Dosage: 2 DOSAGE FORM (2 TABLETS)
     Route: 065
     Dates: start: 20221107

REACTIONS (17)
  - Electrocardiogram QT prolonged [Unknown]
  - Metastasis [Unknown]
  - Blood magnesium increased [Unknown]
  - Haematocrit decreased [Unknown]
  - Haemoglobin decreased [Unknown]
  - White blood cell count decreased [Unknown]
  - Neutrophil count increased [Recovered/Resolved]
  - Neutrophil count decreased [Recovered/Resolved]
  - Lymphocyte count increased [Recovered/Resolved]
  - Platelet count increased [Recovered/Resolved]
  - Blood sodium decreased [Recovered/Resolved]
  - Blood phosphorus decreased [Recovered/Resolved]
  - Bilirubin conjugated increased [Recovered/Resolved]
  - Aspartate aminotransferase increased [Recovered/Resolved]
  - Blood alkaline phosphatase increased [Unknown]
  - Pulmonary hilar enlargement [Unknown]
  - Lung cyst [Unknown]
